FAERS Safety Report 4650499-0 (Version None)
Quarter: 2005Q2

REPORT INFORMATION
  Report Type: 
  Country: None (occurrence: None)
  Receive Date: 20050429
  Receipt Date: 20050422
  Transmission Date: 20051028
  Serious: Yes (Other)
  Sender: FDA-Public Use
  Company Number: IND-AE-04-SAN-005

PATIENT
  Age: 73 Year
  Sex: Female

DRUGS (5)
  1. REGURIN (TROSPIUM CHLORIDE 20MG TABLETS) MADAUS [Suspect]
     Indication: URINARY INCONTINENCE
     Dosage: 20 MG - BID - ORAL
     Route: 048
     Dates: start: 20040812, end: 20040901
  2. BENDROFLUZAIDE [Concomitant]
  3. LISINOPRIL [Concomitant]
  4. DICLOFENAC 50 GM [Concomitant]
  5. VOLTAROL (DICLOFENAC) RETARD [Concomitant]

REACTIONS (5)
  - BARRETT'S OESOPHAGUS [None]
  - DUODENITIS [None]
  - GASTRITIS [None]
  - GASTROINTESTINAL HAEMORRHAGE [None]
  - HAEMATEMESIS [None]
